FAERS Safety Report 4971880-6 (Version None)
Quarter: 2006Q2

REPORT INFORMATION
  Report Type: 
  Country: None (occurrence: None)
  Receive Date: 20060413
  Receipt Date: 20060405
  Transmission Date: 20061013
  Serious: Yes (Other)
  Sender: FDA-Public Use
  Company Number: GB-MERCK-0604USA00827

PATIENT
  Age: 33 Year
  Sex: Male
  Weight: 97 kg

DRUGS (2)
  1. PRINIVIL [Suspect]
     Indication: HYPERTENSION
     Route: 048
     Dates: start: 20060307, end: 20060314
  2. RAMIPRIL [Suspect]
     Indication: HYPERTENSION
     Route: 048
     Dates: start: 20040702, end: 20050513

REACTIONS (2)
  - AFFECTIVE DISORDER [None]
  - IRRITABILITY [None]
